FAERS Safety Report 11518686 (Version 1)
Quarter: 2015Q3

REPORT INFORMATION
  Report Type: Report from Study
  Country: US (occurrence: US)
  Receive Date: 20150917
  Receipt Date: 20150917
  Transmission Date: 20151125
  Serious: Yes (Hospitalization)
  Sender: FDA-Public Use
  Company Number: US-ACTELION-A-NJ2015-123840

PATIENT
  Age: 57 Year
  Sex: Female

DRUGS (1)
  1. MECHLORETHAMINE [Suspect]
     Active Substance: MECHLORETHAMINE
     Indication: MYCOSIS FUNGOIDES
     Dosage: 0.016%, QD
     Route: 061
     Dates: start: 20150607

REACTIONS (2)
  - Drug dose omission [Recovered/Resolved]
  - Nephrolithiasis [Recovered/Resolved]
